FAERS Safety Report 8498194-4 (Version None)
Quarter: 2012Q3

REPORT INFORMATION
  Report Type: 
  Country: None (occurrence: None)
  Receive Date: 20120709
  Receipt Date: 20120620
  Transmission Date: 20120928
  Serious: No
  Sender: FDA-Public Use
  Company Number: US-AMGEN-USASP2012038333

PATIENT
  Age: 57 Year
  Sex: Female

DRUGS (1)
  1. ENBREL [Suspect]
     Indication: RHEUMATOID ARTHRITIS
     Dosage: 50 MG, QWK
     Dates: start: 19990101

REACTIONS (6)
  - VISION BLURRED [None]
  - HEADACHE [None]
  - VITREOUS FLOATERS [None]
  - MUSCULOSKELETAL PAIN [None]
  - EAR PAIN [None]
  - PARAESTHESIA [None]
